FAERS Safety Report 19701285 (Version 3)
Quarter: 2021Q3

REPORT INFORMATION
  Report Type: Spontaneous
  Country: US (occurrence: US)
  Receive Date: 20210813
  Receipt Date: 20210918
  Transmission Date: 20211014
  Serious: Yes (Hospitalization, Other)
  Sender: FDA-Public Use
  Company Number: US-ROCHE-2887146

PATIENT
  Age: 29 Year
  Sex: Male
  Weight: 77.18 kg

DRUGS (9)
  1. OXYGEN. [Concomitant]
     Active Substance: OXYGEN
     Indication: PULMONARY FUNCTION TEST DECREASED
     Dosage: ONGOING: NO, 2 TO 3 CONTINUOUS
     Route: 045
     Dates: start: 20210522, end: 20210619
  2. XOLAIR [Suspect]
     Active Substance: OMALIZUMAB
     Indication: CHRONIC SPONTANEOUS URTICARIA
     Dosage: 2, 150MG INJECTIONS ;ONGOING: NO, LAST DOSE ON 20/JUN/2019 ? XOLAIR INJECTED ON 01?JUL?2021
     Route: 058
     Dates: end: 20190620
  3. XOLAIR [Suspect]
     Active Substance: OMALIZUMAB
     Route: 058
     Dates: start: 201901, end: 201908
  4. LORAZEPAM. [Concomitant]
     Active Substance: LORAZEPAM
     Dosage: THROUGH PORT
     Route: 042
     Dates: start: 2020
  5. OXYGEN. [Concomitant]
     Active Substance: OXYGEN
     Dosage: ONGOING: YES, 2 TO 3 LITERS AS NEEDED
     Route: 045
     Dates: start: 20210619
  6. XOLAIR [Suspect]
     Active Substance: OMALIZUMAB
     Dosage: 2 INJECTIONS PER DOSE ROUTE OF INJECTION ADMINISTRATION
     Route: 058
     Dates: start: 20210401, end: 20210701
  7. XOLAIR [Suspect]
     Active Substance: OMALIZUMAB
     Dosage: 2, 150MG INJECTIONS ;ONGOING: YES
     Route: 058
     Dates: start: 20210415
  8. LORAZEPAM. [Concomitant]
     Active Substance: LORAZEPAM
     Route: 048
     Dates: start: 2020
  9. PREDNISONE. [Concomitant]
     Active Substance: PREDNISONE
     Dosage: 20?40MG
     Route: 042
     Dates: start: 2021, end: 2021

REACTIONS (8)
  - Blood immunoglobulin E increased [Unknown]
  - Chronic kidney disease [Not Recovered/Not Resolved]
  - Anxiety [Not Recovered/Not Resolved]
  - Rhinovirus infection [Recovering/Resolving]
  - Renal injury [Not Recovered/Not Resolved]
  - Groin abscess [Not Recovered/Not Resolved]
  - Device related infection [Recovered/Resolved]
  - Folliculitis [Not Recovered/Not Resolved]

NARRATIVE: CASE EVENT DATE: 202105
